FAERS Safety Report 17112087 (Version 3)
Quarter: 2020Q1

REPORT INFORMATION
  Report Type: Spontaneous
  Country: FR (occurrence: FR)
  Receive Date: 20191204
  Receipt Date: 20200103
  Transmission Date: 20200409
  Serious: Yes (Other)
  Sender: FDA-Public Use
  Company Number: FR-ALEXION-A201809631

PATIENT
  Sex: Male

DRUGS (4)
  1. STRENSIQ [Suspect]
     Active Substance: ASFOTASE ALFA
     Indication: HYPOPHOSPHATASIA
     Dosage: 2 MG/KG, THRICE A WEEK
     Route: 065
     Dates: start: 201405
  2. STRENSIQ [Suspect]
     Active Substance: ASFOTASE ALFA
     Dosage: 3 MG/KG, THRICE A WEEK
     Route: 065
     Dates: start: 201606, end: 20180809
  3. RITUXIMAB. [Concomitant]
     Active Substance: RITUXIMAB
     Indication: PRODUCT USED FOR UNKNOWN INDICATION
     Dosage: 375 MG/M2 X 4
     Route: 065
     Dates: start: 20181130, end: 20181221
  4. IMMUNOGLOBULIN I.V [Concomitant]
     Active Substance: HUMAN IMMUNOGLOBULIN G
     Indication: PRODUCT USED FOR UNKNOWN INDICATION
     Dosage: HIGH DOSES X 3 DOSS
     Route: 042

REACTIONS (19)
  - Deformity [Not Recovered/Not Resolved]
  - Feeding disorder [Unknown]
  - C-telopeptide increased [Unknown]
  - Pain [Unknown]
  - Neutralising antibodies [Unknown]
  - Platelet count increased [Unknown]
  - Serum procollagen type I N-terminal propeptide increased [Unknown]
  - Condition aggravated [Unknown]
  - Respiratory disorder [Unknown]
  - Blood chloride increased [Unknown]
  - Haematocrit decreased [Unknown]
  - Vitamin D deficiency [Unknown]
  - Vitamin B6 increased [Unknown]
  - Drug ineffective [Unknown]
  - Blood alkaline phosphatase increased [Unknown]
  - Fatigue [Unknown]
  - Fracture [Unknown]
  - Haemoglobin decreased [Unknown]
  - Blood parathyroid hormone increased [Unknown]

NARRATIVE: CASE EVENT DATE: 20180206
